FAERS Safety Report 7235078-3 (Version None)
Quarter: 2011Q1

REPORT INFORMATION
  Report Type: 
  Country: None (occurrence: None)
  Receive Date: 20110120
  Receipt Date: 20110113
  Transmission Date: 20110831
  Serious: Yes (Hospitalization)
  Sender: FDA-Public Use
  Company Number: US-ABBOTT-11P-163-0696974-00

PATIENT
  Sex: Male
  Weight: 83.99 kg

DRUGS (8)
  1. VITAMIN D [Concomitant]
     Indication: VITAMIN SUPPLEMENTATION
  2. SINGULAIR [Concomitant]
     Indication: RESPIRATORY TRACT CONGESTION
  3. FISH OIL [Concomitant]
     Indication: MINERAL SUPPLEMENTATION
  4. MULTIPLE VITAMINS [Concomitant]
     Indication: VITAMIN SUPPLEMENTATION
  5. HUMIRA [Suspect]
     Indication: RHEUMATOID ARTHRITIS
     Dates: start: 20080214, end: 20100601
  6. ASCORBIC ACID [Concomitant]
     Indication: VITAMIN SUPPLEMENTATION
  7. COQ10 [Concomitant]
     Indication: SUPPLEMENTATION THERAPY
  8. HUMIRA [Suspect]
     Dates: start: 20100801

REACTIONS (4)
  - MYOCARDIAL INFARCTION [None]
  - DIZZINESS [None]
  - CHEST PAIN [None]
  - DYSPNOEA [None]
